FAERS Safety Report 21813417 (Version 3)
Quarter: 2023Q1

REPORT INFORMATION
  Report Type: Report from Study
  Country: BR (occurrence: BR)
  Receive Date: 20230103
  Receipt Date: 20230125
  Transmission Date: 20230417
  Serious: Yes (Other)
  Sender: FDA-Public Use
  Company Number: BR-CELLTRION INC.-2022BR021926

PATIENT

DRUGS (3)
  1. INFLIXIMAB [Suspect]
     Active Substance: INFLIXIMAB
     Indication: Crohn^s disease
     Dosage: UNK
     Route: 042
     Dates: start: 20220308
  2. INFLIXIMAB [Suspect]
     Active Substance: INFLIXIMAB
     Dosage: 3 AMPULES EVERY 8 WEEKS
     Route: 042
     Dates: start: 202208
  3. Acetato de clormadinona + etinilestradiol [Concomitant]
     Indication: Endometriosis
     Dosage: 1 CAPSULE PER DAY
     Route: 048
     Dates: start: 201909

REACTIONS (11)
  - COVID-19 [Recovered/Resolved]
  - Haemorrhage [Unknown]
  - Viral infection [Unknown]
  - Abdominal pain [Unknown]
  - Nausea [Unknown]
  - Abdominal distension [Unknown]
  - Asthenia [Unknown]
  - Headache [Unknown]
  - Dizziness [Unknown]
  - Intentional dose omission [Unknown]
  - Treatment delayed [Unknown]
